FAERS Safety Report 24913546 (Version 1)
Quarter: 2025Q1

REPORT INFORMATION
  Report Type: Spontaneous
  Country: AU (occurrence: AU)
  Receive Date: 20250201
  Receipt Date: 20250201
  Transmission Date: 20250409
  Serious: Yes (Life-Threatening, Hospitalization)
  Sender: AMGEN
  Company Number: AU-AMGEN-AUSSP2025015616

PATIENT
  Age: 38 Year
  Sex: Male

DRUGS (13)
  1. BEVACIZUMAB [Suspect]
     Active Substance: BEVACIZUMAB
     Indication: Colorectal cancer
     Route: 040
     Dates: start: 20241210, end: 20241210
  2. BEVACIZUMAB [Suspect]
     Active Substance: BEVACIZUMAB
     Route: 040
     Dates: start: 20240430
  3. FLUOROURACIL [Suspect]
     Active Substance: FLUOROURACIL
     Indication: Colorectal cancer
     Route: 040
     Dates: start: 20241210, end: 20241212
  4. FLUOROURACIL [Suspect]
     Active Substance: FLUOROURACIL
     Route: 040
     Dates: start: 20240430
  5. ALCESTOBART [Suspect]
     Active Substance: ALCESTOBART
     Indication: Colorectal cancer
     Route: 040
     Dates: start: 20241210, end: 20241210
  6. ALCESTOBART [Suspect]
     Active Substance: ALCESTOBART
     Route: 040
     Dates: start: 20240430
  7. LEUCOVORIN [Suspect]
     Active Substance: LEUCOVORIN\LEUCOVORIN CALCIUM
     Indication: Colorectal cancer
     Route: 040
     Dates: start: 20241210, end: 20241210
  8. LEUCOVORIN [Suspect]
     Active Substance: LEUCOVORIN\LEUCOVORIN CALCIUM
     Route: 040
     Dates: start: 20240430
  9. TISLELIZUMAB [Suspect]
     Active Substance: TISLELIZUMAB
     Indication: Colorectal cancer
     Route: 040
     Dates: start: 20241210, end: 20241210
  10. TISLELIZUMAB [Suspect]
     Active Substance: TISLELIZUMAB
     Route: 040
     Dates: start: 20240430
  11. THYROXINE [Concomitant]
     Active Substance: LEVOTHYROXINE
     Indication: Autoimmune hypothyroidism
     Route: 048
     Dates: start: 20240723
  12. HYDROCORTISONE [Concomitant]
     Active Substance: HYDROCORTISONE
     Route: 040
     Dates: start: 20240515
  13. VOLTAREN [Concomitant]
     Active Substance: DICLOFENAC SODIUM
     Indication: Palmar-plantar erythrodysaesthesia syndrome
     Route: 061
     Dates: start: 20240528

REACTIONS (1)
  - Diabetic ketoacidosis [Not Recovered/Not Resolved]

NARRATIVE: CASE EVENT DATE: 20250103
